FAERS Safety Report 10906917 (Version 2)
Quarter: 2017Q1

REPORT INFORMATION
  Report Type: Spontaneous
  Country: IE (occurrence: IE)
  Receive Date: 20150312
  Receipt Date: 20170206
  Transmission Date: 20170428
  Serious: Yes (Death)
  Sender: FDA-Public Use
  Company Number: IE-ROCHE-1549228

PATIENT
  Sex: Female

DRUGS (9)
  1. PARACETAMOL [Concomitant]
     Active Substance: ACETAMINOPHEN
  2. TEMAZEPAM. [Concomitant]
     Active Substance: TEMAZEPAM
  3. OXAZEPAM. [Concomitant]
     Active Substance: OXAZEPAM
  4. CODEINE [Concomitant]
     Active Substance: CODEINE
  5. PARAMOL (DIHYDROCODEINE BITARTRATE/PARACETAMOL) [Suspect]
     Active Substance: ACETAMINOPHEN\DIHYDROCODEINE BITARTRATE
     Indication: ANXIETY DISORDER
     Dosage: 8 TABLETS DAILY
     Route: 065
     Dates: start: 2010
  6. DALMANE [Suspect]
     Active Substance: FLURAZEPAM HYDROCHLORIDE
     Indication: ANOREXIA NERVOSA
     Dosage: NOCTE
     Route: 048
     Dates: start: 2010
  7. VALIUM [Suspect]
     Active Substance: DIAZEPAM
     Indication: ANXIETY DISORDER
     Dosage: 40 MG
     Route: 048
     Dates: start: 2010
  8. FLURAZEPAM [Concomitant]
     Active Substance: FLURAZEPAM\FLURAZEPAM HYDROCHLORIDE
  9. XANAX [Suspect]
     Active Substance: ALPRAZOLAM
     Indication: ANXIETY DISORDER
     Dosage: 4 MG
     Route: 048
     Dates: start: 2010

REACTIONS (1)
  - Depressed level of consciousness [Fatal]
